FAERS Safety Report 5162693-3 (Version None)
Quarter: 2006Q4

REPORT INFORMATION
  Report Type: 
  Country: None (occurrence: None)
  Receive Date: 20061201
  Receipt Date: 20060505
  Transmission Date: 20070319
  Serious: No
  Sender: FDA-Public Use
  Company Number: CHPA2006US04332

PATIENT
  Age: 44 Year
  Sex: Female
  Weight: 68.6 kg

DRUGS (2)
  1. AUGMENTIN '125' [Suspect]
     Indication: BRONCHIAL IRRITATION
     Dosage: 125MG TWICE PER DAY
     Route: 048
     Dates: start: 20060426
  2. NICOTINE [Suspect]
     Indication: SMOKING CESSATION THERAPY
     Dosage: 21MG PER DAY
     Route: 062
     Dates: start: 20060426

REACTIONS (2)
  - ASTHENIA [None]
  - HEADACHE [None]
